FAERS Safety Report 20409129 (Version 1)
Quarter: 2022Q1

REPORT INFORMATION
  Report Type: Spontaneous
  Country: US (occurrence: US)
  Receive Date: 20220201
  Receipt Date: 20220201
  Transmission Date: 20220424
  Serious: Yes (Other)
  Sender: FDA-Public Use
  Company Number: US-STRIDES ARCOLAB LIMITED-2022SP000852

PATIENT
  Sex: Female

DRUGS (38)
  1. PROPRANOLOL [Suspect]
     Active Substance: PROPRANOLOL HYDROCHLORIDE
     Indication: Migraine without aura
     Dosage: UNK
     Route: 065
  2. PROPRANOLOL [Suspect]
     Active Substance: PROPRANOLOL HYDROCHLORIDE
     Indication: Migraine
  3. RIZATRIPTAN [Suspect]
     Active Substance: RIZATRIPTAN
     Indication: Migraine without aura
     Dosage: UNK
     Route: 065
  4. RIZATRIPTAN [Suspect]
     Active Substance: RIZATRIPTAN
     Indication: Migraine
  5. NARATRIPTAN [Suspect]
     Active Substance: NARATRIPTAN HYDROCHLORIDE
     Indication: Migraine without aura
     Dosage: UNK
     Route: 065
  6. NARATRIPTAN [Suspect]
     Active Substance: NARATRIPTAN HYDROCHLORIDE
     Indication: Migraine
  7. ERENUMAB [Suspect]
     Active Substance: ERENUMAB
     Indication: Migraine without aura
     Dosage: UNK
     Route: 065
  8. ERENUMAB [Suspect]
     Active Substance: ERENUMAB
     Indication: Migraine
  9. GALCANEZUMAB [Suspect]
     Active Substance: GALCANEZUMAB
     Indication: Migraine without aura
     Dosage: 120 MILLIGRAM, EVERY 30 DAYS
     Route: 065
  10. GALCANEZUMAB [Suspect]
     Active Substance: GALCANEZUMAB
     Indication: Migraine
  11. LASMIDITAN [Concomitant]
     Active Substance: LASMIDITAN
     Indication: Migraine without aura
     Dosage: UNK
     Route: 065
  12. LASMIDITAN [Concomitant]
     Active Substance: LASMIDITAN
     Indication: Migraine
  13. CELECOXIB [Concomitant]
     Active Substance: CELECOXIB
     Indication: Migraine without aura
     Dosage: UNK
     Route: 065
  14. CELECOXIB [Concomitant]
     Active Substance: CELECOXIB
     Indication: Migraine
  15. AMITRIPTYLINE [Concomitant]
     Active Substance: AMITRIPTYLINE
     Indication: Migraine without aura
     Dosage: UNK
     Route: 065
  16. AMITRIPTYLINE [Concomitant]
     Active Substance: AMITRIPTYLINE
     Indication: Migraine
  17. DULOXETINE [Concomitant]
     Active Substance: DULOXETINE
     Indication: Migraine without aura
     Dosage: UNK
     Route: 065
  18. DULOXETINE [Concomitant]
     Active Substance: DULOXETINE
     Indication: Migraine
  19. PREGABALIN [Concomitant]
     Active Substance: PREGABALIN
     Indication: Migraine without aura
     Dosage: UNK
     Route: 065
  20. PREGABALIN [Concomitant]
     Active Substance: PREGABALIN
     Indication: Migraine
  21. ONABOTULINUMTOXINA [Concomitant]
     Active Substance: ONABOTULINUMTOXINA
     Indication: Migraine without aura
     Dosage: UNK
     Route: 065
  22. ONABOTULINUMTOXINA [Concomitant]
     Active Substance: ONABOTULINUMTOXINA
     Indication: Migraine
  23. DIPHENHYDRAMINE [Concomitant]
     Active Substance: DIPHENHYDRAMINE
     Indication: Migraine without aura
     Dosage: UNK
     Route: 065
  24. DIPHENHYDRAMINE [Concomitant]
     Active Substance: DIPHENHYDRAMINE
     Indication: Migraine
  25. ACETAMINOPHEN\HYDROCODONE [Concomitant]
     Active Substance: ACETAMINOPHEN\HYDROCODONE
     Indication: Migraine without aura
     Dosage: UNK
     Route: 065
  26. ACETAMINOPHEN\HYDROCODONE [Concomitant]
     Active Substance: ACETAMINOPHEN\HYDROCODONE
     Indication: Migraine
  27. PROCHLORPERAZINE [Concomitant]
     Active Substance: PROCHLORPERAZINE
     Indication: Migraine without aura
     Dosage: UNK
     Route: 065
  28. PROCHLORPERAZINE [Concomitant]
     Active Substance: PROCHLORPERAZINE
     Indication: Migraine
  29. BUTALBITAL [Concomitant]
     Active Substance: BUTALBITAL
     Indication: Migraine without aura
     Dosage: UNK
     Route: 065
  30. BUTALBITAL [Concomitant]
     Active Substance: BUTALBITAL
     Indication: Migraine
  31. TIZANIDINE [Concomitant]
     Active Substance: TIZANIDINE
     Indication: Migraine without aura
     Dosage: UNK
     Route: 065
  32. TIZANIDINE [Concomitant]
     Active Substance: TIZANIDINE
     Indication: Migraine
  33. PREDNISONE [Concomitant]
     Active Substance: PREDNISONE
     Indication: Migraine without aura
     Dosage: UNK
     Route: 065
  34. PREDNISONE [Concomitant]
     Active Substance: PREDNISONE
     Indication: Migraine
  35. MEMANTINE [Concomitant]
     Active Substance: MEMANTINE
     Indication: Migraine without aura
     Dosage: UNK
     Route: 065
  36. MEMANTINE [Concomitant]
     Active Substance: MEMANTINE
     Indication: Migraine
  37. DEXAMETHASONE [Concomitant]
     Active Substance: DEXAMETHASONE
     Indication: Migraine without aura
     Dosage: UNK
     Route: 065
  38. DEXAMETHASONE [Concomitant]
     Active Substance: DEXAMETHASONE
     Indication: Migraine

REACTIONS (4)
  - Telangiectasia [Not Recovered/Not Resolved]
  - Condition aggravated [Not Recovered/Not Resolved]
  - Osteolysis [Unknown]
  - Calcinosis [Unknown]
